FAERS Safety Report 8743944 (Version 4)
Quarter: 2013Q1

REPORT INFORMATION
  Report Type: Spontaneous
  Country: JP (occurrence: JP)
  Receive Date: 20120824
  Receipt Date: 20130204
  Transmission Date: 20140127
  Serious: Yes (Hospitalization)
  Sender: FDA-Public Use
  Company Number: JP-ABBOTT-12P-087-0954421-00

PATIENT
  Age: 3 Year
  Sex: Female
  Weight: 15.2 kg

DRUGS (9)
  1. CLARITH DRY SYRUP [Suspect]
     Indication: PNEUMONIA
     Dosage: 180 MG (90 MG, BID)
     Route: 048
     Dates: start: 20120531, end: 20120611
  2. TIPEPIDINE HIBENZATE [Concomitant]
     Indication: UPPER RESPIRATORY TRACT INFLAMMATION
     Route: 048
     Dates: start: 20120426, end: 20120617
  3. PERIACTIN [Concomitant]
     Indication: UPPER RESPIRATORY TRACT INFLAMMATION
     Route: 048
     Dates: start: 20120426, end: 20120611
  4. MUCODYNE [Concomitant]
     Indication: UPPER RESPIRATORY TRACT INFLAMMATION
     Route: 048
     Dates: start: 20120426, end: 20120617
  5. NIPOLAZIN [Concomitant]
     Indication: RHINITIS ALLERGIC
     Route: 048
     Dates: start: 20120512, end: 20120514
  6. COLISTIMETHATE SODIUM W/ERYTHROMYCIN LACTOBIO [Concomitant]
     Indication: CONJUNCTIVITIS
     Route: 047
     Dates: start: 20120512, end: 20120514
  7. FLOMOX [Concomitant]
     Indication: PNEUMONIA
     Route: 048
     Dates: start: 20120516, end: 20120519
  8. ONON [Concomitant]
     Indication: BRONCHITIS
     Route: 048
     Dates: start: 20120612, end: 20120614
  9. SINGULAIR [Concomitant]
     Indication: BRONCHITIS
     Route: 048
     Dates: start: 20120615, end: 20120617

REACTIONS (1)
  - Drug-induced liver injury [Recovered/Resolved]
